FAERS Safety Report 25614453 (Version 1)
Quarter: 2025Q3

REPORT INFORMATION
  Report Type: Spontaneous
  Country: EU (occurrence: EU)
  Receive Date: 20250729
  Receipt Date: 20250729
  Transmission Date: 20251021
  Serious: Yes (Other)
  Sender: NOVO NORDISK
  Company Number: None

PATIENT
  Age: 47 Year
  Sex: Female
  Weight: 86 kg

DRUGS (1)
  1. SAXENDA [Suspect]
     Active Substance: LIRAGLUTIDE
     Indication: Obesity
     Dates: start: 20241031, end: 20250430

REACTIONS (1)
  - Bipolar I disorder [Recovering/Resolving]

NARRATIVE: CASE EVENT DATE: 20241105
